FAERS Safety Report 25884284 (Version 1)
Quarter: 2025Q4

REPORT INFORMATION
  Report Type: Spontaneous
  Country: US (occurrence: None)
  Receive Date: 20251003
  Receipt Date: 20251003
  Transmission Date: 20260118
  Serious: No
  Sender: FDA-CTU
  Company Number: None

PATIENT
  Age: 73 Year
  Sex: Male

DRUGS (2)
  1. PROAIR HFA [Suspect]
     Active Substance: ALBUTEROL SULFATE
     Dosage: OTHER FREQUENCY : EVERY 4-6 HOURS;?
     Route: 055
  2. OHTUVAYRE [Suspect]
     Active Substance: ENSIFENTRINE

REACTIONS (4)
  - Drug ineffective [None]
  - Therapy cessation [None]
  - Dyspnoea [None]
  - Device use issue [None]

NARRATIVE: CASE EVENT DATE: 20251003
